FAERS Safety Report 15339193 (Version 2)
Quarter: 2018Q3

REPORT INFORMATION
  Report Type: Report from Study
  Country: None (occurrence: US)
  Receive Date: 20180831
  Receipt Date: 20180911
  Transmission Date: 20181010
  Serious: Yes (Hospitalization, Disabling, Other)
  Sender: FDA-Public Use
  Company Number: US-ABBVIE-18K-163-2469661-00

PATIENT
  Age: 63 Year
  Sex: Male
  Weight: 88.98 kg

DRUGS (2)
  1. LISINOPRIL. [Concomitant]
     Active Substance: LISINOPRIL
     Indication: HYPERTENSION
  2. MAVYRET [Suspect]
     Active Substance: GLECAPREVIR\PIBRENTASVIR
     Indication: HEPATITIS C
     Dosage: COURSE COMPLETED
     Route: 048
     Dates: start: 201805, end: 201807

REACTIONS (5)
  - Disability [Unknown]
  - Abdominal pain [Recovering/Resolving]
  - Gastrointestinal haemorrhage [Recovered/Resolved]
  - Oesophageal varices haemorrhage [Recovered/Resolved]
  - Nausea [Recovering/Resolving]

NARRATIVE: CASE EVENT DATE: 20180828
